FAERS Safety Report 5866243-5 (Version None)
Quarter: 2008Q3

REPORT INFORMATION
  Report Type: 
  Country: None (occurrence: None)
  Receive Date: 20080829
  Receipt Date: 20080820
  Transmission Date: 20090109
  Serious: Yes (Other)
  Sender: FDA-Public Use
  Company Number: FR-PFIZER INC-2008070266

PATIENT
  Sex: Female

DRUGS (6)
  1. AROMASIN [Suspect]
  2. FLUOROURACIL [Concomitant]
  3. EPIRUBICIN HYDROCHLORIDE [Concomitant]
  4. CYCLOPHOSPHAMIDE [Concomitant]
  5. ANASTROZOLE [Concomitant]
  6. TRASTUZUMAB [Concomitant]

REACTIONS (11)
  - ALOPECIA [None]
  - ARTHRALGIA [None]
  - BURNING SENSATION [None]
  - FATIGUE [None]
  - HYPERTRICHOSIS [None]
  - MUSCULOSKELETAL STIFFNESS [None]
  - OEDEMA PERIPHERAL [None]
  - ONYCHOCLASIS [None]
  - PAIN IN EXTREMITY [None]
  - TENDONITIS [None]
  - WEIGHT INCREASED [None]
